FAERS Safety Report 7560973-5 (Version None)
Quarter: 2011Q2

REPORT INFORMATION
  Report Type: 
  Country: None (occurrence: None)
  Receive Date: 20110620
  Receipt Date: 20110620
  Transmission Date: 20111010
  Serious: Yes (Other)
  Sender: FDA-Public Use
  Company Number: None

PATIENT
  Age: 45 Year
  Sex: Female
  Weight: 97.977 kg

DRUGS (2)
  1. ORAJEL MAXIMUM STRENGTH CHURCH + DWIGHT CO., INC [Suspect]
     Indication: TOOTHACHE
     Dosage: PEA-SIZED EVERY 6 HOURS TOP
     Route: 061
     Dates: start: 20110319, end: 20110319
  2. ORAJEL MAXIMUM STRENGTH CHURCH + DWIGHT CO., INC [Suspect]
     Indication: GINGIVAL PAIN
     Dosage: PEA-SIZED EVERY 6 HOURS TOP
     Route: 061
     Dates: start: 20110319, end: 20110319

REACTIONS (3)
  - OEDEMA MOUTH [None]
  - EAR PAIN [None]
  - PRESYNCOPE [None]
